FAERS Safety Report 24773827 (Version 4)
Quarter: 2025Q2

REPORT INFORMATION
  Report Type: Report from Study
  Country: IT (occurrence: IT)
  Receive Date: 20241225
  Receipt Date: 20250408
  Transmission Date: 20250716
  Serious: Yes (Other)
  Sender: ALEXION PHARMACEUTICALS
  Company Number: IT-ASTRAZENECA-202412GLO016247IT

PATIENT
  Age: 12 Year

DRUGS (6)
  1. SELUMETINIB [Suspect]
     Active Substance: SELUMETINIB
     Indication: Neurofibromatosis
     Dosage: 40 MILLIGRAM, BID
     Route: 065
  2. SELUMETINIB [Suspect]
     Active Substance: SELUMETINIB
     Dosage: 60 MILLIGRAM, BID
     Route: 065
  3. SELUMETINIB [Suspect]
     Active Substance: SELUMETINIB
     Dosage: 40 MILLIGRAM, QD
     Route: 065
  4. VITAMIN B COMPLEX NOS [Concomitant]
     Active Substance: CYANOCOBALAMIN\PYRIDOXINE HYDROCHLORIDE\RIBOFLAVIN\SODIUM PANTOTHENATE\THIAMINE HYDROCHLORIDE\VITAMI
     Indication: Prophylaxis
     Dosage: 16.4 GRAM, QD
     Route: 065
  5. LACTOFERRIN [Concomitant]
     Active Substance: LACTOFERRIN
     Indication: Prophylaxis
     Dosage: 200 MILLIGRAM, QD
  6. VITAMIN D [Concomitant]
     Active Substance: VITAMIN D NOS
     Indication: Prophylaxis

REACTIONS (2)
  - Neutropenia [Not Recovered/Not Resolved]
  - Blood creatine phosphokinase increased [Recovered/Resolved]
